FAERS Safety Report 9465502 (Version 2)
Quarter: 2013Q3

REPORT INFORMATION
  Report Type: Spontaneous
  Country: DE (occurrence: DE)
  Receive Date: 20130820
  Receipt Date: 20130919
  Transmission Date: 20140515
  Serious: Yes (Other)
  Sender: FDA-Public Use
  Company Number: DE-BRISTOL-MYERS SQUIBB COMPANY-19196146

PATIENT
  Age: 83 Year
  Sex: Male

DRUGS (1)
  1. ELIQUIS [Suspect]
     Indication: ATRIAL FIBRILLATION
     Dosage: 5 MG

REACTIONS (4)
  - Fall [Unknown]
  - Limb injury [Recovered/Resolved]
  - Wound haemorrhage [Recovered/Resolved]
  - Impaired healing [Recovered/Resolved]
